FAERS Safety Report 15996671 (Version 1)
Quarter: 2019Q1

REPORT INFORMATION
  Report Type: Spontaneous
  Country: FI (occurrence: FI)
  Receive Date: 20190222
  Receipt Date: 20190222
  Transmission Date: 20190418
  Serious: Yes (Other)
  Sender: FDA-Public Use
  Company Number: FI-ASTRAZENECA-2018SE60381

PATIENT
  Sex: Female

DRUGS (14)
  1. BURANA [Suspect]
     Active Substance: IBUPROFEN
     Indication: MUSCULOSKELETAL PAIN
     Dosage: 8 - EVERY HOUR
     Route: 048
     Dates: start: 20161214
  2. ROSUVASTATIN. [Suspect]
     Active Substance: ROSUVASTATIN
     Indication: ANGIOPLASTY
     Route: 048
     Dates: start: 20180110, end: 201802
  3. PANADOL [Concomitant]
     Active Substance: ACETAMINOPHEN
     Indication: PRODUCT USED FOR UNKNOWN INDICATION
  4. PRIMASPAN [Suspect]
     Active Substance: ASPIRIN
     Indication: CEREBRAL INFARCTION
     Route: 048
  5. ZOLT [LANSOPRAZOLE] [Suspect]
     Active Substance: LANSOPRAZOLE
     Indication: GASTRIC DISORDER
     Route: 048
     Dates: start: 20180110, end: 201803
  6. ZOLT [LANSOPRAZOLE] [Suspect]
     Active Substance: LANSOPRAZOLE
     Indication: GASTRIC DISORDER
     Route: 048
     Dates: start: 20180110, end: 201803
  7. THYROXIN [Suspect]
     Active Substance: LEVOTHYROXINE
     Indication: THYROID DISORDER
     Dosage: 1 TABLET ON 3 DAYS, HALF TABLET ON 4 DAYS;
     Route: 048
  8. CLOPIDOGREL [Interacting]
     Active Substance: CLOPIDOGREL BISULFATE
     Indication: PRODUCT USED FOR UNKNOWN INDICATION
     Route: 048
     Dates: start: 20180110, end: 201803
  9. THYROXIN [Suspect]
     Active Substance: LEVOTHYROXINE
     Indication: THYROID DISORDER
     Dosage: 1 TABLET ON 3 DAYS, HALF TABLET ON 4 DAYS;
     Route: 048
  10. BURANA [Suspect]
     Active Substance: IBUPROFEN
     Indication: MUSCULOSKELETAL PAIN
     Dosage: 8 - EVERY HOUR
     Route: 048
     Dates: start: 20161214
  11. SOMAC [Concomitant]
     Active Substance: PANTOPRAZOLE SODIUM
     Indication: PRODUCT USED FOR UNKNOWN INDICATION
  12. THYROXIN [Suspect]
     Active Substance: LEVOTHYROXINE
     Indication: MUSCULOSKELETAL PAIN
     Dosage: 1 TABLET ON 3 DAYS, HALF TABLET ON 4 DAYS;
     Route: 048
  13. BUVENTOL EASYHALER [Suspect]
     Active Substance: ALBUTEROL SULFATE
     Indication: DYSPNOEA
     Dosage: 200 MICROGRAMS PER INHALATION
     Route: 055
     Dates: start: 201806
  14. DULOXETINE. [Concomitant]
     Active Substance: DULOXETINE
     Indication: PRODUCT USED FOR UNKNOWN INDICATION

REACTIONS (44)
  - Vision blurred [Not Recovered/Not Resolved]
  - Palpitations [Not Recovered/Not Resolved]
  - Rash macular [Not Recovered/Not Resolved]
  - Thyroid function test abnormal [Unknown]
  - Acne [Recovered/Resolved]
  - Hypotension [Not Recovered/Not Resolved]
  - Abdominal distension [Unknown]
  - Confusional state [Unknown]
  - Haematoma [Not Recovered/Not Resolved]
  - Muscle spasms [Unknown]
  - Contraindicated product administered [None]
  - Gait inability [Not Recovered/Not Resolved]
  - Loss of control of legs [Unknown]
  - Palmar erythema [Unknown]
  - Arthralgia [Not Recovered/Not Resolved]
  - Product prescribing error [Unknown]
  - Asthenia [Not Recovered/Not Resolved]
  - Pain in extremity [Unknown]
  - Musculoskeletal disorder [Not Recovered/Not Resolved]
  - Abdominal pain upper [Not Recovered/Not Resolved]
  - Muscle strain [Unknown]
  - Condition aggravated [Unknown]
  - Weight decreased [Unknown]
  - Hernia [Unknown]
  - Nerve compression [Not Recovered/Not Resolved]
  - Diverticulitis [Not Recovered/Not Resolved]
  - Movement disorder [Not Recovered/Not Resolved]
  - Inflammatory marker increased [Unknown]
  - Headache [Not Recovered/Not Resolved]
  - Osteoarthritis [Not Recovered/Not Resolved]
  - Muscle spasms [Not Recovered/Not Resolved]
  - Facial spasm [Not Recovered/Not Resolved]
  - Myalgia [Not Recovered/Not Resolved]
  - Malaise [Unknown]
  - Drug interaction [Unknown]
  - Dyspnoea [Not Recovered/Not Resolved]
  - Amnesia [Unknown]
  - Abdominal discomfort [Unknown]
  - Facial pain [Not Recovered/Not Resolved]
  - Paraesthesia [Not Recovered/Not Resolved]
  - Angina pectoris [Unknown]
  - Nervous system disorder [Unknown]
  - Scleral discolouration [Not Recovered/Not Resolved]
  - Muscular weakness [Unknown]

NARRATIVE: CASE EVENT DATE: 2016
